FAERS Safety Report 7325730-3 (Version None)
Quarter: 2011Q1

REPORT INFORMATION
  Report Type: 
  Country: None (occurrence: None)
  Receive Date: 20110302
  Receipt Date: 20101101
  Transmission Date: 20110831
  Serious: No
  Sender: FDA-Public Use
  Company Number: US-BAYER-201023428BCC

PATIENT
  Sex: Male

DRUGS (3)
  1. ASCORBIC ACID [Concomitant]
  2. MULTI-VITAMINS [Concomitant]
  3. ALEVE [Suspect]
     Indication: ANALGESIC THERAPY
     Dosage: 2 DF, UNK
     Route: 048
     Dates: start: 20101030

REACTIONS (2)
  - INFLAMMATION [None]
  - PRURITUS [None]
